FAERS Safety Report 25269279 (Version 1)
Quarter: 2025Q2

REPORT INFORMATION
  Report Type: Spontaneous
  Country: US (occurrence: None)
  Receive Date: 20250505
  Receipt Date: 20250505
  Transmission Date: 20250716
  Serious: Yes (Hospitalization)
  Sender: FDA-CTU
  Company Number: None

PATIENT
  Age: 70 Year
  Sex: Female
  Weight: 63 kg

DRUGS (7)
  1. GAMMAGARD [Suspect]
     Active Substance: HUMAN IMMUNOGLOBULIN G
     Indication: Chronic inflammatory demyelinating polyradiculoneuropathy
     Route: 042
     Dates: start: 20250428
  2. CYMBALTA [Concomitant]
     Active Substance: DULOXETINE HYDROCHLORIDE
     Dates: start: 20220501
  3. Lisinopril-hctz 20-12.5 [Concomitant]
     Dates: start: 20220502
  4. Lyrica 300mg [Concomitant]
     Dates: start: 20220501
  5. Metoprolol Succinate ER 50mg [Concomitant]
     Dates: start: 20220501
  6. NALTREXONE [Concomitant]
     Active Substance: NALTREXONE
     Dates: start: 20220501
  7. ROSUVASTATIN [Concomitant]
     Active Substance: ROSUVASTATIN
     Dates: start: 20220501

REACTIONS (3)
  - Nausea [None]
  - Hypophagia [None]
  - Facial paralysis [None]

NARRATIVE: CASE EVENT DATE: 20250504
